FAERS Safety Report 20453561 (Version 1)
Quarter: 2022Q1

REPORT INFORMATION
  Report Type: Spontaneous
  Country: IN (occurrence: IN)
  Receive Date: 20220210
  Receipt Date: 20220210
  Transmission Date: 20220423
  Serious: No
  Sender: FDA-Public Use
  Company Number: None

PATIENT
  Age: 35 Year
  Sex: Male

DRUGS (3)
  1. LINEZOLID [Suspect]
     Active Substance: LINEZOLID
     Indication: Staphylococcal infection
     Dosage: 600 MILLIGRAM, QD
     Route: 065
  2. LINEZOLID [Suspect]
     Active Substance: LINEZOLID
     Indication: Mycobacterium abscessus infection
  3. AMIKACIN [Concomitant]
     Active Substance: AMIKACIN
     Indication: Staphylococcal infection
     Dosage: UNK
     Route: 065

REACTIONS (3)
  - Oral mucosal discolouration [Recovering/Resolving]
  - Trichoglossia [Recovering/Resolving]
  - Tooth discolouration [Recovering/Resolving]
